FAERS Safety Report 8452815-0 (Version None)
Quarter: 2012Q2

REPORT INFORMATION
  Report Type: 
  Country: None (occurrence: None)
  Receive Date: 20120620
  Receipt Date: 20120427
  Transmission Date: 20120825
  Serious: No
  Sender: FDA-Public Use
  Company Number: US-VERTEX PHARMACEUTICALS INC.-AE-2012-006164

PATIENT
  Age: 54 Year
  Sex: Male

DRUGS (6)
  1. PEGASYS [Concomitant]
     Dates: start: 20120124
  2. INCIVEK [Suspect]
     Indication: HEPATITIS C
     Route: 048
     Dates: start: 20110906
  3. RIBAVIRIN [Concomitant]
     Indication: HEPATITIS C
     Dates: start: 20110906
  4. PEGASYS [Concomitant]
     Indication: HEPATITIS C
     Dates: start: 20110906
  5. RIBAVIRIN [Concomitant]
     Dates: start: 20120124
  6. INCIVEK [Suspect]
     Route: 048
     Dates: start: 20120124, end: 20120413

REACTIONS (4)
  - INFECTION [None]
  - DIZZINESS [None]
  - ASTHENIA [None]
  - HAEMOGLOBIN DECREASED [None]
